FAERS Safety Report 17812788 (Version 1)
Quarter: 2020Q2

REPORT INFORMATION
  Report Type: Report from Study
  Country: US (occurrence: US)
  Receive Date: 20200521
  Receipt Date: 20200521
  Transmission Date: 20200714
  Serious: Yes (Hospitalization)
  Sender: FDA-Public Use
  Company Number: US-EISAI MEDICAL RESEARCH-EC-2020-073615

PATIENT
  Age: 85 Year
  Sex: Female

DRUGS (1)
  1. LENVIMA [Suspect]
     Active Substance: LENVATINIB
     Indication: THYROID CANCER
     Route: 048
     Dates: start: 20200411, end: 202005

REACTIONS (13)
  - Gait inability [Unknown]
  - Gastritis [Unknown]
  - Somnolence [Unknown]
  - Kidney infection [Unknown]
  - Decreased appetite [Unknown]
  - Bone swelling [Unknown]
  - Blood pressure increased [Recovering/Resolving]
  - Skin ulcer [Unknown]
  - Diarrhoea [Unknown]
  - Asthenia [Unknown]
  - Dysphonia [Unknown]
  - Haemoptysis [Unknown]
  - Musculoskeletal pain [Unknown]

NARRATIVE: CASE EVENT DATE: 2020
